FAERS Safety Report 23214421 (Version 4)
Quarter: 2024Q1

REPORT INFORMATION
  Report Type: Spontaneous
  Country: US (occurrence: US)
  Receive Date: 20231121
  Receipt Date: 20240216
  Transmission Date: 20240410
  Serious: Yes (Other)
  Sender: FDA-Public Use
  Company Number: US-VERTEX PHARMACEUTICALS-2023-017373

PATIENT
  Age: 34 Year

DRUGS (11)
  1. TRIKAFTA [Suspect]
     Active Substance: ELEXACAFTOR\IVACAFTOR\TEZACAFTOR
     Indication: Cystic fibrosis
     Dosage: UNKNOWN DOSAGE REGIMEN
     Route: 048
     Dates: start: 2022
  2. CAYSTON [Suspect]
     Active Substance: AZTREONAM
     Indication: Product used for unknown indication
     Dosage: UNK FREQ
     Route: 065
  3. PULMOZYME [Concomitant]
     Active Substance: DORNASE ALFA
  4. TOBI [Concomitant]
     Active Substance: TOBRAMYCIN
  5. ALBUTEROL [Concomitant]
     Active Substance: ALBUTEROL
  6. CREON [Concomitant]
     Active Substance: PANCRELIPASE AMYLASE\PANCRELIPASE LIPASE\PANCRELIPASE PROTEASE
  7. AZITHROMYCIN [Concomitant]
     Active Substance: AZITHROMYCIN
  8. VITAMIN C [Concomitant]
     Active Substance: ASCORBIC ACID
  9. COLLAGEN [Concomitant]
     Active Substance: COLLAGEN
  10. HYPERTONIC [Concomitant]
  11. NAC N ACETYL L CYSTEINE [Concomitant]

REACTIONS (23)
  - Pulmonary resection [Unknown]
  - Pulmonary bullectomy [Unknown]
  - Hospitalisation [Unknown]
  - Surgery [Unknown]
  - Dyspnoea [Unknown]
  - Thinking abnormal [Not Recovered/Not Resolved]
  - Anxiety [Unknown]
  - Forced expiratory volume decreased [Unknown]
  - Pneumothorax [Recovered/Resolved]
  - Breath sounds abnormal [Recovered/Resolved]
  - Tooth disorder [Unknown]
  - Weight gain poor [Unknown]
  - Fatigue [Unknown]
  - Illness [Unknown]
  - Pneumonia [Recovered/Resolved]
  - COVID-19 [Recovered/Resolved]
  - Taste disorder [Unknown]
  - Parosmia [Unknown]
  - Skin odour abnormal [Unknown]
  - Brain fog [Not Recovered/Not Resolved]
  - Depression [Unknown]
  - Acne [Unknown]
  - Abdominal pain upper [Unknown]

NARRATIVE: CASE EVENT DATE: 20230101
